FAERS Safety Report 6303952-8 (Version None)
Quarter: 2009Q3

REPORT INFORMATION
  Report Type: 
  Country: None (occurrence: None)
  Receive Date: 20090810
  Receipt Date: 20090810
  Transmission Date: 20100115
  Serious: Yes (Life-Threatening, Hospitalization, Other)
  Sender: FDA-Public Use
  Company Number: None

PATIENT
  Sex: Male
  Weight: 100.2449 kg

DRUGS (1)
  1. AMBIEN [Suspect]
     Indication: INITIAL INSOMNIA
     Dosage: 1 PER DAY PO
     Route: 048
     Dates: start: 20090423, end: 20090509

REACTIONS (3)
  - DELUSION [None]
  - PSYCHOTIC DISORDER [None]
  - SUICIDAL IDEATION [None]
